FAERS Safety Report 6355557-0 (Version None)
Quarter: 2009Q3

REPORT INFORMATION
  Report Type: 
  Country: None (occurrence: None)
  Receive Date: 20090914
  Receipt Date: 20090903
  Transmission Date: 20100115
  Serious: Yes (Hospitalization)
  Sender: FDA-Public Use
  Company Number: IT-GENENTECH-289995

PATIENT
  Sex: Male

DRUGS (3)
  1. ACTIVASE [Suspect]
     Indication: ISCHAEMIC STROKE
     Dosage: 60 MG, UNK
     Route: 042
     Dates: start: 20090730, end: 20090730
  2. UROKINASE [Suspect]
     Indication: ISCHAEMIC STROKE
     Dosage: 800000 U, UNK
     Route: 013
     Dates: start: 20090730, end: 20090730
  3. CLEXANE [Concomitant]
     Indication: DRUG USE FOR UNKNOWN INDICATION
     Dosage: 4000 U, UNK
     Dates: start: 20090731, end: 20090731

REACTIONS (2)
  - HAEMORRHAGE INTRACRANIAL [None]
  - SOMNOLENCE [None]
